FAERS Safety Report 6765219-3 (Version None)
Quarter: 2010Q2

REPORT INFORMATION
  Report Type: 
  Country: None (occurrence: None)
  Receive Date: 20100610
  Receipt Date: 20100610
  Transmission Date: 20101027
  Serious: Yes (Hospitalization)
  Sender: FDA-Public Use
  Company Number: None

PATIENT
  Sex: Male
  Weight: 75.6 kg

DRUGS (3)
  1. CARBOPLATIN [Suspect]
     Dosage: 912 MG
     Dates: end: 20100507
  2. ERBITUX [Suspect]
     Dosage: 480 MG
     Dates: end: 20100507
  3. TAXOL [Suspect]
     Dosage: 380 MG
     Dates: end: 20100507

REACTIONS (3)
  - HAEMATEMESIS [None]
  - HAEMATURIA [None]
  - OESOPHAGITIS [None]
